FAERS Safety Report 6286652-2 (Version None)
Quarter: 2009Q3

REPORT INFORMATION
  Report Type: 
  Country: None (occurrence: None)
  Receive Date: 20090728
  Receipt Date: 20090717
  Transmission Date: 20100115
  Serious: Yes (Other)
  Sender: FDA-Public Use
  Company Number: PHHY2009JP22431

PATIENT
  Sex: Male
  Weight: 63 kg

DRUGS (4)
  1. DIOVAN [Suspect]
     Dosage: 40 MG/DAILY
     Route: 048
     Dates: start: 20080214, end: 20080929
  2. ADALAT [Concomitant]
     Indication: HYPERTENSION
     Dosage: 20 MG, UNK
     Route: 048
     Dates: start: 20080214
  3. ALOSITOL [Concomitant]
     Dosage: 200 MG, UNK
     Route: 048
  4. MEVALOTIN [Concomitant]
     Dosage: 5 MG, UNK
     Route: 048

REACTIONS (3)
  - BLOOD POTASSIUM INCREASED [None]
  - BLOOD PRESSURE SYSTOLIC INCREASED [None]
  - BLOOD TRIGLYCERIDES INCREASED [None]
